FAERS Safety Report 7709988-4 (Version None)
Quarter: 2011Q3

REPORT INFORMATION
  Report Type: 
  Country: None (occurrence: None)
  Receive Date: 20110825
  Receipt Date: 20110812
  Transmission Date: 20111222
  Serious: Yes (Other)
  Sender: FDA-Public Use
  Company Number: PHHY2011PK74877

PATIENT
  Sex: Female
  Weight: 1.74 kg

DRUGS (10)
  1. DIGOXIN [Suspect]
     Dosage: 0.25 MG, QD
  2. CEFTAZIDIME [Suspect]
     Dosage: 1 G, UNK
  3. METOPROLOL TARTRATE [Suspect]
     Dosage: 25 MG, QID
  4. VANCOMYCIN HCL [Suspect]
     Dosage: 1 G, UNK
  5. ASPIRIN [Suspect]
     Dosage: 75 MG, QD
  6. WARFARIN [Suspect]
     Dosage: 2.5 MG, QD
  7. PROGESTERONE [Suspect]
  8. ATENOLOL [Suspect]
     Dosage: 25 MG, UNK
  9. WARFARIN [Suspect]
     Dosage: 5 MG, UNK
  10. ENOXAPARIN [Suspect]
     Dosage: 40 MG, BID

REACTIONS (3)
  - PREMATURE BABY [None]
  - SMALL FOR DATES BABY [None]
  - MATERNAL EXPOSURE DURING PREGNANCY [None]
